FAERS Safety Report 8190984-0 (Version None)
Quarter: 2012Q1

REPORT INFORMATION
  Report Type: 
  Country: None (occurrence: None)
  Receive Date: 20120221
  Receipt Date: 20111116
  Transmission Date: 20120608
  Serious: No
  Sender: FDA-Public Use
  Company Number: 1000025592

PATIENT
  Age: 62 Year
  Sex: Female

DRUGS (7)
  1. SYNTHROID (LEVOTHYROXINE SODIUM) (LEVOTHYROXINE SODIUM) [Concomitant]
  2. XANAX [Concomitant]
  3. NORVASC [Concomitant]
  4. VYTORIN (INEGY) (INEGY) [Concomitant]
  5. PREMAR IN (ESTROGENS CONJUGATED) (ESTROGENS CONJUGATED) [Concomitant]
  6. VIIBRYD [Suspect]
     Indication: DEPRESSION
     Dosage: 10 MG (10 MG, 1 IN 1 D),ORAL; 20 MG (20 MG, 1 IN 1 D),ORAL
     Route: 048
     Dates: start: 20110101
  7. VIIBRYD [Suspect]
     Indication: DEPRESSION
     Dosage: 10 MG (10 MG, 1 IN 1 D),ORAL; 20 MG (20 MG, 1 IN 1 D),ORAL
     Route: 048
     Dates: start: 20111101, end: 20111101

REACTIONS (5)
  - ANXIETY [None]
  - AGITATION [None]
  - HEART RATE INCREASED [None]
  - BLOOD PRESSURE DECREASED [None]
  - SOMNOLENCE [None]
